FAERS Safety Report 8301420-5 (Version None)
Quarter: 2012Q2

REPORT INFORMATION
  Report Type: 
  Country: None (occurrence: None)
  Receive Date: 20120417
  Receipt Date: 20120403
  Transmission Date: 20120825
  Serious: Yes (Other)
  Sender: FDA-Public Use
  Company Number: FK201201040

PATIENT
  Age: 55 Year
  Sex: Female

DRUGS (6)
  1. METHOTREXATE [Suspect]
     Indication: PSORIATIC ARTHROPATHY
     Dosage: 5 MG, 1 IN 1 WK,
  2. ETANERCEPT (ETHANERCEPT) [Suspect]
     Indication: PSORIATIC ARTHROPATHY
     Dosage: 50 MG, 1 IN 1 WK,
  3. NIFEDIPINE [Concomitant]
  4. GLICLAZIDE [Concomitant]
  5. CANDESARTAN CILEXETIL [Concomitant]
  6. METFORMIN HCL [Concomitant]

REACTIONS (1)
  - TUBULOINTERSTITIAL NEPHRITIS [None]
